FAERS Safety Report 9531636 (Version 1)
Quarter: 2013Q3

REPORT INFORMATION
  Report Type: Spontaneous
  Country: US (occurrence: None)
  Receive Date: 20130917
  Receipt Date: 20130917
  Transmission Date: 20140515
  Serious: No
  Sender: FDA-Public Use
  Company Number: None

PATIENT
  Age: 26 Year
  Sex: Female

DRUGS (1)
  1. MIRENA IUD [Suspect]
     Indication: CONTRACEPTION
     Dates: start: 20130430, end: 20130913

REACTIONS (1)
  - Complication of device removal [None]
